FAERS Safety Report 26117805 (Version 2)
Quarter: 2025Q4

REPORT INFORMATION
  Report Type: Spontaneous
  Country: EU (occurrence: EU)
  Receive Date: 20251203
  Receipt Date: 20251223
  Transmission Date: 20260118
  Serious: Yes (Hospitalization, Other)
  Sender: PFIZER
  Company Number: EU-BIOVITRUM-2025-FR-015972

PATIENT
  Age: 5 Year
  Sex: Female
  Weight: 29 kg

DRUGS (7)
  1. METHYLPREDNISOLONE [Suspect]
     Active Substance: METHYLPREDNISOLONE
     Indication: Acute lymphocytic leukaemia
     Dosage: 30 MG
     Dates: start: 20251109
  2. METHYLPREDNISOLONE [Suspect]
     Active Substance: METHYLPREDNISOLONE
     Dosage: 30 MG
     Dates: start: 20251111
  3. GAMIFANT [Suspect]
     Active Substance: EMAPALUMAB-LZSG
     Indication: Haemophagocytic lymphohistiocytosis
     Dosage: 5 MG/ML
  4. KINERET [Suspect]
     Active Substance: ANAKINRA
     Indication: Acute lymphocytic leukaemia
     Dosage: 120 MG, EVERY 6 HOURS
     Route: 042
     Dates: start: 20251112, end: 20251121
  5. TOCILIZUMAB [Suspect]
     Active Substance: TOCILIZUMAB
     Indication: Acute lymphocytic leukaemia
     Dosage: 340 MG (SECOND DOSE 12 HOURS LATER)
     Dates: start: 20251109
  6. TOCILIZUMAB [Suspect]
     Active Substance: TOCILIZUMAB
     Dosage: 340 MG (FIRST DOSE)
     Dates: start: 20251109
  7. DEXAMETHASONE [Suspect]
     Active Substance: DEXAMETHASONE
     Indication: Acute lymphocytic leukaemia
     Dosage: 5 MG (EVERY 12 HOURS)
     Dates: start: 20251112

REACTIONS (6)
  - Haemophagocytic lymphohistiocytosis [Recovered/Resolved]
  - Disseminated intravascular coagulation [Unknown]
  - Haemodynamic instability [Unknown]
  - Hypernatraemia [Unknown]
  - Oedema [Unknown]
  - Abdominal pain [Unknown]
